FAERS Safety Report 10995003 (Version 5)
Quarter: 2015Q4

REPORT INFORMATION
  Report Type: Spontaneous
  Country: US (occurrence: US)
  Receive Date: 20150407
  Receipt Date: 20151123
  Transmission Date: 20160304
  Serious: Yes (Hospitalization, Other)
  Sender: FDA-Public Use
  Company Number: US-GLAXOSMITHKLINE-US2015044357

PATIENT
  Sex: Male

DRUGS (4)
  1. ADVAIR DISKUS [Suspect]
     Active Substance: FLUTICASONE PROPIONATE\SALMETEROL XINAFOATE
     Indication: CHRONIC OBSTRUCTIVE PULMONARY DISEASE
     Dosage: 1 PUFF(S), BID
     Route: 055
  2. FLONASE [Concomitant]
     Active Substance: FLUTICASONE PROPIONATE
  3. VENTOLIN HFA [Suspect]
     Active Substance: ALBUTEROL SULFATE
     Indication: CHRONIC OBSTRUCTIVE PULMONARY DISEASE
     Dosage: UNK, PRN
     Route: 055
  4. VENTOLIN HFA [Suspect]
     Active Substance: ALBUTEROL SULFATE
     Indication: EMPHYSEMA
     Dosage: UNK

REACTIONS (13)
  - Bronchitis [Recovering/Resolving]
  - Influenza [Unknown]
  - Treatment noncompliance [Unknown]
  - Lower respiratory tract infection viral [Recovering/Resolving]
  - Dyspnoea [Unknown]
  - Nasopharyngitis [Unknown]
  - Condition aggravated [Not Recovered/Not Resolved]
  - Pneumonia [Unknown]
  - Pain [Recovering/Resolving]
  - Pleural effusion [Recovering/Resolving]
  - Malaise [Recovering/Resolving]
  - Inappropriate schedule of drug administration [Unknown]
  - Lung disorder [Unknown]
